FAERS Safety Report 11343058 (Version 1)
Quarter: 2015Q3

REPORT INFORMATION
  Report Type: Spontaneous
  Country: US (occurrence: US)
  Receive Date: 20150805
  Receipt Date: 20150805
  Transmission Date: 20151125
  Serious: No
  Sender: FDA-Public Use
  Company Number: US-ANACOR-2015ANA00070

PATIENT

DRUGS (2)
  1. JUBLIA [Suspect]
     Active Substance: EFINACONAZOLE
     Dosage: UNK, 1X/DAY
  2. KERYDIN [Suspect]
     Active Substance: TAVABOROLE
     Dosage: UNK UNK, 1X/DAY

REACTIONS (1)
  - Dermatitis contact [Unknown]
